FAERS Safety Report 23452635 (Version 2)
Quarter: 2024Q1

REPORT INFORMATION
  Report Type: Spontaneous
  Country: FR (occurrence: None)
  Receive Date: 20240129
  Receipt Date: 20240209
  Transmission Date: 20240410
  Serious: Yes (Hospitalization)
  Sender: FDA-Public Use
  Company Number: 2024A021312

PATIENT
  Age: 83 Year
  Sex: Female
  Weight: 59 kg

DRUGS (14)
  1. QUETIAPINE [Suspect]
     Active Substance: QUETIAPINE
     Route: 048
     Dates: start: 20231219
  2. QUETIAPINE [Suspect]
     Active Substance: QUETIAPINE
     Dosage: 50.0MG UNKNOWN
     Route: 048
     Dates: start: 20231227
  3. QUETIAPINE [Suspect]
     Active Substance: QUETIAPINE
     Dosage: 100.0MG UNKNOWN
     Route: 048
     Dates: start: 20240102
  4. QUETIAPINE [Suspect]
     Active Substance: QUETIAPINE
     Dosage: 15.0MG UNKNOWN
     Route: 048
     Dates: start: 20240111
  5. QUETIAPINE [Suspect]
     Active Substance: QUETIAPINE
     Dosage: 200.0MG UNKNOWN
     Route: 048
     Dates: start: 20240102
  6. QUETIAPINE [Suspect]
     Active Substance: QUETIAPINE
     Dosage: 150.0MG UNKNOWN
     Route: 048
  7. SERTRALINE [Suspect]
     Active Substance: SERTRALINE HYDROCHLORIDE
     Indication: Anxiety disorder
     Dosage: 50.0MG UNKNOWN
     Route: 048
     Dates: start: 20230222, end: 20240108
  8. SERTRALINE [Suspect]
     Active Substance: SERTRALINE HYDROCHLORIDE
     Indication: Persistent depressive disorder
     Dosage: 50.0MG UNKNOWN
     Route: 048
     Dates: start: 20230222, end: 20240108
  9. SERTRALINE [Suspect]
     Active Substance: SERTRALINE HYDROCHLORIDE
     Indication: Anxiety disorder
     Dosage: 75.0MG UNKNOWN
     Route: 048
     Dates: start: 202303
  10. SERTRALINE [Suspect]
     Active Substance: SERTRALINE HYDROCHLORIDE
     Indication: Persistent depressive disorder
     Dosage: 75.0MG UNKNOWN
     Route: 048
     Dates: start: 202303
  11. SERTRALINE [Suspect]
     Active Substance: SERTRALINE HYDROCHLORIDE
     Indication: Anxiety disorder
     Dosage: 100.0MG UNKNOWN
     Route: 048
     Dates: start: 202305
  12. SERTRALINE [Suspect]
     Active Substance: SERTRALINE HYDROCHLORIDE
     Indication: Persistent depressive disorder
     Dosage: 100.0MG UNKNOWN
     Route: 048
     Dates: start: 202305
  13. SERTRALINE [Suspect]
     Active Substance: SERTRALINE HYDROCHLORIDE
     Indication: Anxiety disorder
     Dosage: 125.0MG UNKNOWN
     Route: 048
     Dates: start: 20231219
  14. SERTRALINE [Suspect]
     Active Substance: SERTRALINE HYDROCHLORIDE
     Indication: Persistent depressive disorder
     Dosage: 125.0MG UNKNOWN
     Route: 048
     Dates: start: 20231219

REACTIONS (2)
  - Cholestasis [Recovered/Resolved]
  - Hepatitis [Recovered/Resolved]

NARRATIVE: CASE EVENT DATE: 20240108
